FAERS Safety Report 4883748-4 (Version None)
Quarter: 2006Q1

REPORT INFORMATION
  Report Type: 
  Country: None (occurrence: None)
  Receive Date: 20060118
  Receipt Date: 20051223
  Transmission Date: 20060701
  Serious: Yes (Hospitalization)
  Sender: FDA-Public Use
  Company Number: JP-ROCHE-429773

PATIENT
  Age: 60 Year
  Sex: Male

DRUGS (8)
  1. PANALDINE [Suspect]
     Indication: THROMBOSIS PROPHYLAXIS
     Route: 048
     Dates: start: 20051101, end: 20051202
  2. ASPIRIN [Concomitant]
     Route: 048
     Dates: start: 20051101, end: 20051202
  3. SIGMART [Concomitant]
     Route: 048
     Dates: start: 20051101, end: 20051202
  4. DIOVAN [Concomitant]
     Indication: HYPERTENSION
     Route: 048
     Dates: start: 20051101, end: 20051202
  5. ARTIST [Concomitant]
     Indication: HYPERTENSION
     Route: 048
     Dates: start: 20051101, end: 20051202
  6. LIPITOR [Concomitant]
     Indication: HYPERLIPIDAEMIA
     Route: 048
     Dates: start: 20051101, end: 20051202
  7. ZANTAC [Concomitant]
     Route: 048
     Dates: start: 20051101, end: 20051202
  8. LENDORMIN [Concomitant]
     Indication: INSOMNIA
     Route: 048
     Dates: start: 20051101, end: 20051202

REACTIONS (6)
  - ABDOMINAL DISTENSION [None]
  - HAEMOLYTIC ANAEMIA [None]
  - ILEUS [None]
  - MALAISE [None]
  - THROMBOCYTOPENIA [None]
  - THROMBOTIC THROMBOCYTOPENIC PURPURA [None]
